FAERS Safety Report 7903290-3 (Version None)
Quarter: 2011Q4

REPORT INFORMATION
  Report Type: 
  Country: None (occurrence: None)
  Receive Date: 20111109
  Receipt Date: 20111103
  Transmission Date: 20120403
  Serious: Yes (Hospitalization, Disabling, Other)
  Sender: FDA-Public Use
  Company Number: FR-ASTELLAS-2011EU003161

PATIENT
  Sex: Female

DRUGS (10)
  1. BRICANYL [Concomitant]
     Dosage: UNK
     Route: 055
  2. TACROLIMUS [Suspect]
     Indication: LIVER TRANSPLANT
     Dosage: 8 MG, UNKNOWN/D
     Route: 048
     Dates: start: 20110504, end: 20110512
  3. OMEPRAZOLE [Concomitant]
     Dosage: 20 MG, UNKNOWN/D
     Route: 048
  4. MYCOPHENOLATE MOFETIL (CELLCEPT) [Concomitant]
     Dosage: 1 DF, BID
     Route: 048
  5. URSOLVAN [Concomitant]
     Dosage: 200 MG, BID
     Route: 048
  6. FLUTICASONE PROPIONATE/SALMETEROL [Concomitant]
     Dosage: UNK
     Route: 055
  7. FERROUS FUMARATE [Concomitant]
     Dosage: 1 DF, TID
     Route: 048
  8. PROGRAF [Suspect]
     Dosage: 4 MG, BID
     Route: 048
  9. TACROLIMUS [Suspect]
     Dosage: 4 MG, UNKNOWN/D
     Route: 048
     Dates: start: 20110512, end: 20110516
  10. PROGRAF [Suspect]
     Dosage: 0.4 MG, BID
     Route: 048
     Dates: end: 20110504

REACTIONS (12)
  - DRUG LEVEL INCREASED [None]
  - HYPERAMMONAEMIA [None]
  - OFF LABEL USE [None]
  - OVERDOSE [None]
  - ASTHMA [None]
  - INCOHERENT [None]
  - MEDICATION ERROR [None]
  - ENCEPHALOPATHY [None]
  - SOMNOLENCE [None]
  - EYELID OEDEMA [None]
  - BALANCE DISORDER [None]
  - RENAL FAILURE ACUTE [None]
